FAERS Safety Report 12530426 (Version 1)
Quarter: 2016Q3

REPORT INFORMATION
  Report Type: Spontaneous
  Country: US (occurrence: None)
  Receive Date: 20160705
  Receipt Date: 20160705
  Transmission Date: 20161109
  Serious: Yes (Death, Hospitalization)
  Sender: FDA-Public Use
  Company Number: None

PATIENT
  Age: 2 Year
  Sex: Female
  Weight: 10.74 kg

DRUGS (5)
  1. DEXAMETHASONE. [Suspect]
     Active Substance: DEXAMETHASONE
     Dates: end: 20160430
  2. CYTARABINE. [Suspect]
     Active Substance: CYTARABINE
     Dates: end: 20160404
  3. LEUCOVORIN. [Suspect]
     Active Substance: LEUCOVORIN
     Dates: end: 20160415
  4. ONCASPAR [Suspect]
     Active Substance: PEGASPARGASE
     Dates: end: 20160408
  5. VINCRISTINE SULFATE. [Suspect]
     Active Substance: VINCRISTINE SULFATE
     Dates: end: 20160419

REACTIONS (9)
  - Intestinal ischaemia [None]
  - Systemic mycosis [None]
  - Ischaemic pancreatitis [None]
  - Hypoxia [None]
  - Mesenteric venous occlusion [None]
  - Necrosis [None]
  - Acidosis [None]
  - Hepatic ischaemia [None]
  - Spleen disorder [None]

NARRATIVE: CASE EVENT DATE: 20160501
